FAERS Safety Report 5695117-8 (Version None)
Quarter: 2008Q2

REPORT INFORMATION
  Report Type: 
  Country: None (occurrence: None)
  Receive Date: 20080404
  Receipt Date: 20080326
  Transmission Date: 20081010
  Serious: Yes (Hospitalization)
  Sender: FDA-Public Use
  Company Number: AU-GENENTECH-258570

PATIENT
  Age: 78 Year
  Sex: Female

DRUGS (5)
  1. MABTHERA [Suspect]
     Indication: DRUG USE FOR UNKNOWN INDICATION
     Dosage: 60 MG, SINGLE
     Route: 042
     Dates: start: 20070906, end: 20070906
  2. CYCLOPHOSPHAMIDE [Suspect]
     Indication: DRUG USE FOR UNKNOWN INDICATION
     Dosage: 118 MG, SINGLE
     Route: 042
     Dates: start: 20070906, end: 20070906
  3. DOXORUBICIN HCL [Suspect]
     Indication: DRUG USE FOR UNKNOWN INDICATION
     Dosage: 78 MG, SINGLE
     Route: 042
     Dates: start: 20070906, end: 20070906
  4. NEULASTA [Suspect]
     Indication: DRUG USE FOR UNKNOWN INDICATION
     Dosage: 6 MG, SINGLE
     Route: 058
     Dates: start: 20070907, end: 20070907
  5. VINCRISTINE [Suspect]
     Indication: DRUG USE FOR UNKNOWN INDICATION
     Dosage: 2 MG, SINGLE
     Route: 042
     Dates: start: 20070906, end: 20070906

REACTIONS (1)
  - FEBRILE NEUTROPENIA [None]
